FAERS Safety Report 5736314-2 (Version None)
Quarter: 2008Q2

REPORT INFORMATION
  Report Type: 
  Country: None (occurrence: None)
  Receive Date: 20080508
  Receipt Date: 20080422
  Transmission Date: 20081010
  Serious: Yes (Congenital Anomaly)
  Sender: FDA-Public Use
  Company Number: S08-DEN-01039-02

PATIENT
  Sex: Female
  Weight: 2.24 kg

DRUGS (1)
  1. AKARIN (CITALOPRAM) [Suspect]
     Dosage: 60 MG QD TRANSPLACENTAL
     Route: 064
     Dates: end: 20080218

REACTIONS (9)
  - ABNORMAL FAECES [None]
  - DRUG WITHDRAWAL SYNDROME NEONATAL [None]
  - FEEDING DISORDER NEONATAL [None]
  - MATERNAL DRUGS AFFECTING FOETUS [None]
  - NEONATAL TACHYCARDIA [None]
  - PSYCHOMOTOR HYPERACTIVITY [None]
  - RESPIRATORY RATE INCREASED [None]
  - RESTLESSNESS [None]
  - TREMOR NEONATAL [None]
